FAERS Safety Report 18818377 (Version 1)
Quarter: 2021Q1

REPORT INFORMATION
  Report Type: Spontaneous
  Country: US (occurrence: US)
  Receive Date: 20210202
  Receipt Date: 20210202
  Transmission Date: 20210419
  Serious: No
  Sender: FDA-Public Use
  Company Number: US-SA-2021SA024343

PATIENT
  Sex: Male

DRUGS (23)
  1. CODEINE PHOSPHATE [Concomitant]
     Active Substance: CODEINE PHOSPHATE
  2. DOXYCYCLINE HYCLATE. [Concomitant]
     Active Substance: DOXYCYCLINE HYCLATE
  3. MORPHINE SULFATE. [Concomitant]
     Active Substance: MORPHINE SULFATE
  4. CODEINE [Concomitant]
     Active Substance: CODEINE
  5. PERCOCET [OXYCODONE HYDROCHLORIDE;OXYCODONE TEREPHTHALATE;PARACETAMOL] [Concomitant]
     Active Substance: ACETAMINOPHEN\OXYCODONE HYDROCHLORIDE\OXYCODONE TEREPHTHALATE
  6. AUBAGIO [Suspect]
     Active Substance: TERIFLUNOMIDE
     Indication: MULTIPLE SCLEROSIS
  7. KEFLEX [Concomitant]
     Active Substance: CEPHALEXIN
  8. COPAXONE [Concomitant]
     Active Substance: GLATIRAMER ACETATE
  9. VICOCLEAR DH [Concomitant]
  10. MS CONTIN [Concomitant]
     Active Substance: MORPHINE SULFATE
  11. BACTRIM [Concomitant]
     Active Substance: SULFAMETHOXAZOLE\TRIMETHOPRIM
  12. DILAUDID [Concomitant]
     Active Substance: HYDROMORPHONE HYDROCHLORIDE
  13. PENICILLIN [PENICILLIN NOS] [Concomitant]
     Active Substance: PENICILLIN
  14. VICODIN [Concomitant]
     Active Substance: ACETAMINOPHEN\HYDROCODONE BITARTRATE
  15. PRISTIQ EXTENDED?RELEASE [Concomitant]
     Active Substance: DESVENLAFAXINE SUCCINATE
  16. ERYTHROMYCIN. [Concomitant]
     Active Substance: ERYTHROMYCIN
  17. FENTANYL. [Concomitant]
     Active Substance: FENTANYL
  18. AVONEX [Concomitant]
     Active Substance: INTERFERON BETA-1A
  19. PENICILLIN G BENZATHINE [Concomitant]
     Active Substance: PENICILLIN G BENZATHINE
  20. NEURONTIN [Concomitant]
     Active Substance: GABAPENTIN
  21. SULFA [SULFADIAZINE] [Concomitant]
     Active Substance: SULFADIAZINE
  22. NAPROSYN E [Concomitant]
     Active Substance: NAPROXEN
  23. ULTRAM ER [Concomitant]
     Active Substance: TRAMADOL HYDROCHLORIDE

REACTIONS (1)
  - Urticaria [Unknown]
